FAERS Safety Report 16924673 (Version 1)
Quarter: 2019Q4

REPORT INFORMATION
  Report Type: Spontaneous
  Country: US (occurrence: US)
  Receive Date: 20191016
  Receipt Date: 20191016
  Transmission Date: 20200122
  Serious: No
  Sender: FDA-Public Use
  Company Number: US-PFIZER INC-2019442012

PATIENT
  Age: 73 Year
  Sex: Female

DRUGS (2)
  1. MULTAQ [Interacting]
     Active Substance: DRONEDARONE
     Dosage: UNK
     Dates: start: 201910
  2. BOSULIF [Suspect]
     Active Substance: BOSUTINIB MONOHYDRATE
     Indication: CHRONIC MYELOID LEUKAEMIA
     Dosage: 200 MG, QD (ONCE A DAY)
     Route: 048
     Dates: start: 20180628

REACTIONS (2)
  - Diarrhoea [Unknown]
  - Drug interaction [Unknown]

NARRATIVE: CASE EVENT DATE: 201910
